FAERS Safety Report 12217536 (Version 1)
Quarter: 2016Q1

REPORT INFORMATION
  Report Type: Spontaneous
  Country: US (occurrence: None)
  Receive Date: 20160328
  Receipt Date: 20160328
  Transmission Date: 20160526
  Serious: Yes (Disabling)
  Sender: FDA-Public Use
  Company Number: None

PATIENT
  Age: 43 Year
  Sex: Male
  Weight: 77.11 kg

DRUGS (1)
  1. PREDNISOLONE: OPHTHALMIC DROPS [Suspect]
     Active Substance: PREDNISOLONE

REACTIONS (4)
  - Dry eye [None]
  - Keratitis [None]
  - Corneal oedema [None]
  - Visual impairment [None]

NARRATIVE: CASE EVENT DATE: 20150717
